FAERS Safety Report 5900637-4 (Version None)
Quarter: 2008Q3

REPORT INFORMATION
  Report Type: 
  Country: None (occurrence: None)
  Receive Date: 20080926
  Receipt Date: 20080915
  Transmission Date: 20090109
  Serious: Yes (Other)
  Sender: FDA-Public Use
  Company Number: DE-PFIZER INC-2008078446

PATIENT
  Age: 70 Year
  Sex: Female

DRUGS (1)
  1. TOLTERODINE TARTRATE [Suspect]
     Indication: URGE INCONTINENCE

REACTIONS (2)
  - ARRHYTHMIA [None]
  - DRY MOUTH [None]
